FAERS Safety Report 6343913-6 (Version None)
Quarter: 2009Q3

REPORT INFORMATION
  Report Type: 
  Country: None (occurrence: None)
  Receive Date: 20090908
  Receipt Date: 20090826
  Transmission Date: 20100115
  Serious: Yes (Hospitalization, Disabling)
  Sender: FDA-Public Use
  Company Number: BR-PFIZER INC-2009246128

PATIENT
  Age: 80 Year

DRUGS (1)
  1. DETRUSITOL LA [Suspect]
     Dosage: UNK
     Route: 048
     Dates: end: 20090701

REACTIONS (1)
  - MYOCARDIAL INFARCTION [None]
